FAERS Safety Report 4633169-4 (Version None)
Quarter: 2005Q2

REPORT INFORMATION
  Report Type: 
  Country: None (occurrence: None)
  Receive Date: 20050411
  Receipt Date: 20050411
  Transmission Date: 20051028
  Serious: Yes (Hospitalization)
  Sender: FDA-Public Use
  Company Number: None

PATIENT
  Sex: Male
  Weight: 82.1 kg

DRUGS (15)
  1. DARBEPOETIN ALFA [Suspect]
     Indication: MYELODYSPLASTIC SYNDROME
     Dosage: 730 MCG SC
     Route: 058
     Dates: start: 20041201, end: 20050302
  2. G-CSF [Suspect]
     Dosage: 400 MCG SC
     Route: 058
     Dates: start: 20050223, end: 20050306
  3. MULTI-VITAMIN [Concomitant]
  4. LEVOTHYROXINE SODIUM [Concomitant]
  5. METOPROLOL TARTRATE [Concomitant]
  6. ASPIRIN [Concomitant]
  7. SERTRALINE [Concomitant]
  8. TAMSULOSIN [Concomitant]
  9. POTASSIUM CHLORIDE [Concomitant]
  10. AMOXICILLIN AND CLAVULANATE POTASSIUM [Concomitant]
  11. FUROSEMIDE [Concomitant]
  12. NITROGLYCERIN SUBLINGUAL [Concomitant]
  13. GUAIFENESIN [Concomitant]
  14. IBUPROFEN [Concomitant]
  15. RANITIDINE [Concomitant]

REACTIONS (6)
  - ABDOMINAL PAIN [None]
  - BLOOD CULTURE POSITIVE [None]
  - BONE PAIN [None]
  - ILEUS [None]
  - STAPHYLOCOCCAL INFECTION [None]
  - WHITE BLOOD CELL COUNT INCREASED [None]
